FAERS Safety Report 14351828 (Version 1)
Quarter: 2018Q1

REPORT INFORMATION
  Report Type: Report from Study
  Country: BR (occurrence: BR)
  Receive Date: 20180104
  Receipt Date: 20180104
  Transmission Date: 20180509
  Serious: Yes (Hospitalization, Other)
  Sender: FDA-Public Use
  Company Number: PHHY2017BR196931

PATIENT
  Age: 65 Year
  Sex: Female
  Weight: 110 kg

DRUGS (1)
  1. FORASEQ [Suspect]
     Active Substance: BUDESONIDE\FORMOTEROL FUMARATE
     Indication: BRONCHITIS
     Dosage: 1 DF, BID (TWICE A DAY, IN THE MORNING AND AT NIGHT)
     Route: 065

REACTIONS (9)
  - Arthralgia [Recovered/Resolved]
  - Hernia [Recovering/Resolving]
  - Obesity [Unknown]
  - Dyspnoea [Unknown]
  - Weight decreased [Unknown]
  - Osteoarthritis [Unknown]
  - Depressed mood [Recovering/Resolving]
  - Hernia pain [Recovered/Resolved]
  - Gait disturbance [Recovering/Resolving]

NARRATIVE: CASE EVENT DATE: 20171130
